FAERS Safety Report 6988070-8 (Version None)
Quarter: 2010Q3

REPORT INFORMATION
  Report Type: 
  Country: None (occurrence: None)
  Receive Date: 20100916
  Receipt Date: 20100908
  Transmission Date: 20110219
  Serious: Yes (Hospitalization)
  Sender: FDA-Public Use
  Company Number: A0881162A

PATIENT
  Age: 73 Year
  Sex: Male

DRUGS (1)
  1. AVANDIA [Suspect]
     Dosage: 2MG TWICE PER DAY
     Route: 048
     Dates: start: 20000601

REACTIONS (4)
  - CARDIAC FAILURE CONGESTIVE [None]
  - HYPERTENSION [None]
  - MYOCARDIAL INFARCTION [None]
  - THROMBOSIS [None]
